FAERS Safety Report 8756937 (Version 2)
Quarter: 2013Q1

REPORT INFORMATION
  Report Type: Spontaneous
  Country: US (occurrence: US)
  Receive Date: 20120828
  Receipt Date: 20130111
  Transmission Date: 20140127
  Serious: Yes (Hospitalization, Other)
  Sender: FDA-Public Use
  Company Number: US-BAYER-2012-087064

PATIENT
  Age: 49 Year
  Sex: Female
  Weight: 73.02 kg

DRUGS (2)
  1. YAZ [Suspect]
     Indication: MENORRHAGIA
     Dosage: UNK
     Route: 048
     Dates: start: 20081201, end: 20110331
  2. YAZ [Suspect]
     Indication: MENSTRUAL CYCLE MANAGEMENT

REACTIONS (10)
  - Pulmonary embolism [None]
  - Deep vein thrombosis [None]
  - Pain [None]
  - Dyspnoea [None]
  - Chest pain [None]
  - Injury [None]
  - Emotional distress [None]
  - Fear of death [None]
  - Pain [None]
  - Off label use [None]
